FAERS Safety Report 10927839 (Version 10)
Quarter: 2016Q2

REPORT INFORMATION
  Report Type: Report from Study
  Country: US (occurrence: US)
  Receive Date: 20150319
  Receipt Date: 20160429
  Transmission Date: 20160815
  Serious: Yes (Hospitalization, Other)
  Sender: FDA-Public Use
  Company Number: US-ALEXION PHARMACEUTICALS INC-A201500891

PATIENT
  Age: 79 Year
  Sex: Male
  Weight: 68.27 kg

DRUGS (14)
  1. TAMSULOSINE [Concomitant]
     Active Substance: TAMSULOSIN HYDROCHLORIDE
     Indication: DYSURIA
     Dosage: 0.4 MG, QHS
     Route: 048
  2. SOLIRIS [Suspect]
     Active Substance: ECULIZUMAB
     Indication: PAROXYSMAL NOCTURNAL HAEMOGLOBINURIA
     Dosage: 900 MG, EVERY OTHER WEEK
     Route: 042
     Dates: start: 20120916
  3. EXJADE [Suspect]
     Active Substance: DEFERASIROX
     Indication: SERUM FERRITIN INCREASED
     Dosage: 100 MG, UNK
     Route: 048
     Dates: end: 20150922
  4. FOSINOPRIL [Concomitant]
     Active Substance: FOSINOPRIL
     Indication: HYPERTENSION
     Dosage: 20 MG, QD
     Route: 048
  5. ARANESP [Concomitant]
     Active Substance: DARBEPOETIN ALFA
     Indication: BONE MARROW DISORDER
     Dosage: 60/0.3, PRN
     Route: 065
  6. AMOXICILLINE                       /00249602/ [Concomitant]
     Active Substance: AMOXICILLIN
     Indication: DENTAL EXAMINATION
     Dosage: 800 MG (200 MG X4), 1 HOUR PRIOR TO DENTAL APPOINTMENT
     Route: 048
  7. CENTRUM SILVER                     /02363801/ [Concomitant]
     Active Substance: MINERALS\VITAMINS
     Indication: NUTRITIONAL SUPPLEMENTATION
     Dosage: 1 EVERY MORNING WITH BREAKFAST
     Route: 048
  8. AVEENO [Suspect]
     Active Substance: DIMETHICONE\HOMOSALATE\OCTINOXATE\OCTISALATE\TITANIUM DIOXIDE
     Indication: DRY SKIN
     Dosage: UNK, QD
     Route: 061
  9. FINASTERIDE. [Concomitant]
     Active Substance: FINASTERIDE
     Indication: DYSURIA
     Dosage: 5 MG, QD
     Route: 048
  10. AMLODIPINE BESYLATE. [Concomitant]
     Active Substance: AMLODIPINE BESYLATE
     Indication: HYPERTENSION
     Dosage: 2.5 MG, QD
     Route: 048
  11. GENGRAF [Concomitant]
     Active Substance: CYCLOSPORINE
     Indication: MYELODYSPLASTIC SYNDROME
     Dosage: 25 MG, BID
     Route: 048
  12. CITRACAL + D                       /01438101/ [Concomitant]
     Indication: NUTRITIONAL SUPPLEMENTATION
     Dosage: 1200 MG TABLETS X2, EVERY MORNING WITH BREAKFAST
     Route: 048
  13. VITAMIN D3 [Concomitant]
     Active Substance: CHOLECALCIFEROL
     Indication: NUTRITIONAL SUPPLEMENTATION
     Dosage: 1000 IU, EVERY MORNING WITH BREAKFAST
     Route: 048
  14. HYDROCORTISONE. [Concomitant]
     Active Substance: HYDROCORTISONE
     Indication: ANAL PRURITUS
     Dosage: UNK, AS NEEDED
     Route: 061

REACTIONS (16)
  - Dyspnoea [Unknown]
  - Red blood cell count decreased [Unknown]
  - Dental caries [Not Recovered/Not Resolved]
  - Haemoglobin decreased [Recovered/Resolved]
  - Fatigue [Not Recovered/Not Resolved]
  - Haemoglobin decreased [Recovering/Resolving]
  - Malaise [Recovering/Resolving]
  - Fatigue [Not Recovered/Not Resolved]
  - Glomerular filtration rate decreased [Unknown]
  - Nasopharyngitis [Recovered/Resolved]
  - Serum ferritin increased [Not Recovered/Not Resolved]
  - Pyrexia [Recovering/Resolving]
  - Blood count abnormal [Unknown]
  - Productive cough [Recovering/Resolving]
  - Arthralgia [Unknown]
  - Blood creatinine increased [Unknown]

NARRATIVE: CASE EVENT DATE: 20141217
